FAERS Safety Report 18755580 (Version 2)
Quarter: 2022Q1

REPORT INFORMATION
  Report Type: Spontaneous
  Country: US (occurrence: US)
  Receive Date: 20210119
  Receipt Date: 20220215
  Transmission Date: 20220423
  Serious: No
  Sender: FDA-Public Use
  Company Number: US-HORIZON-2021HZN00429

PATIENT
  Sex: Female

DRUGS (5)
  1. TEPEZZA [Suspect]
     Active Substance: TEPROTUMUMAB-TRBW
     Indication: Endocrine ophthalmopathy
     Dosage: 1800 MG EVERY THREE WEEKS
     Route: 042
     Dates: start: 202011
  2. TEPEZZA [Suspect]
     Active Substance: TEPROTUMUMAB-TRBW
     Dosage: UNK
     Route: 042
     Dates: start: 20210716
  3. METHIMAZOLE [Concomitant]
     Active Substance: METHIMAZOLE
     Indication: Product used for unknown indication
     Dosage: 10 MG, UNK
  4. LINZESS [Concomitant]
     Active Substance: LINACLOTIDE
     Indication: Product used for unknown indication
     Dosage: 145 UG, UNK
  5. Trazodone HCL 300mg Tablet [Concomitant]
     Indication: Product used for unknown indication
     Dosage: 300 MG, UNK

REACTIONS (3)
  - Thyroid disorder [Unknown]
  - Hyperglycaemia [Unknown]
  - Muscle spasms [Unknown]
